FAERS Safety Report 19249022 (Version 3)
Quarter: 2021Q2

REPORT INFORMATION
  Report Type: Other
  Country: US (occurrence: US)
  Receive Date: 20210512
  Receipt Date: 20210621
  Transmission Date: 20210717
  Serious: Yes (Hospitalization)
  Sender: FDA-Public Use
  Company Number: US-ROCHE-2828641

PATIENT
  Age: 60 Year
  Sex: Female

DRUGS (7)
  1. BENET [Suspect]
     Active Substance: RISEDRONATE SODIUM
     Indication: OSTEOPOROSIS
     Route: 065
     Dates: start: 2007
  2. PREDNISOLONE. [Concomitant]
     Active Substance: PREDNISOLONE
     Indication: RHEUMATOID ARTHRITIS
  3. MEIACT MS [Concomitant]
     Active Substance: CEFDITOREN PIVOXIL
  4. ACTEMRA [Suspect]
     Active Substance: TOCILIZUMAB
     Indication: RHEUMATOID ARTHRITIS
     Route: 042
     Dates: end: 201001
  5. ACRINOL [Concomitant]
  6. PREDNISOLONE. [Concomitant]
     Active Substance: PREDNISOLONE
  7. METHOTREXATE. [Suspect]
     Active Substance: METHOTREXATE
     Indication: RHEUMATOID ARTHRITIS
     Dosage: ON SATURDAYS AND SUNDAYS
     Route: 065
     Dates: start: 2007, end: 201001

REACTIONS (1)
  - Osteonecrosis of jaw [Recovered/Resolved]
